FAERS Safety Report 19088607 (Version 1)
Quarter: 2021Q2

REPORT INFORMATION
  Report Type: Spontaneous
  Country: DE (occurrence: DE)
  Receive Date: 20210402
  Receipt Date: 20210402
  Transmission Date: 20210717
  Serious: Yes (Other)
  Sender: FDA-Public Use
  Company Number: DE-UCBSA-2021014442

PATIENT
  Age: 0 Year
  Sex: Female
  Weight: 3.9 kg

DRUGS (6)
  1. LAMOTRIGINE. [Suspect]
     Active Substance: LAMOTRIGINE
     Indication: EPILEPSY
     Dosage: 480 MG
     Route: 064
     Dates: start: 201910, end: 2020
  2. LAMOTRIGINE. [Suspect]
     Active Substance: LAMOTRIGINE
     Dosage: DOSE UP?TITRATED (DOSE AND FREQUENCY UNKNOWN)
     Route: 064
     Dates: start: 2020
  3. LACOSAMIDE. [Suspect]
     Active Substance: LACOSAMIDE
     Indication: EPILEPSY
     Dosage: 300 MG (FREQUENCY UNKNOWN)
     Route: 064
     Dates: start: 201910, end: 2020
  4. FYCOMPA [Suspect]
     Active Substance: PERAMPANEL
     Indication: EPILEPSY
     Dosage: 8 MG DAILY
     Route: 064
     Dates: start: 2020
  5. LACOSAMIDE. [Suspect]
     Active Substance: LACOSAMIDE
     Dosage: DOSE UPTITRATED
     Route: 064
     Dates: start: 2020
  6. FYCOMPA [Suspect]
     Active Substance: PERAMPANEL
     Indication: PARTIAL SEIZURES
     Dosage: 6 MG DAILY
     Route: 064
     Dates: start: 201910, end: 2020

REACTIONS (2)
  - Maternal exposure before pregnancy [Unknown]
  - Postmature baby [Unknown]

NARRATIVE: CASE EVENT DATE: 201910
